FAERS Safety Report 7047773-X (Version None)
Quarter: 2010Q4

REPORT INFORMATION
  Report Type: 
  Country: None (occurrence: None)
  Receive Date: 20101015
  Receipt Date: 20101005
  Transmission Date: 20110411
  Serious: Yes (Other)
  Sender: FDA-Public Use
  Company Number: US-PFIZER INC-2010107884

PATIENT
  Sex: Female
  Weight: 81.2 kg

DRUGS (5)
  1. LIPITOR [Suspect]
     Indication: BLOOD CHOLESTEROL INCREASED
     Dosage: 10 MG, 1X/DAY
     Route: 048
     Dates: start: 20080101, end: 20100816
  2. VALSARTAN [Concomitant]
     Indication: BLOOD PRESSURE INCREASED
     Dosage: UNK
  3. METOPROLOL [Concomitant]
     Dosage: 25 MG, UNK
  4. PLAVIX [Concomitant]
     Dosage: 75 MG, UNK
  5. ACETYLSALICYLIC ACID [Concomitant]

REACTIONS (6)
  - DERMATITIS [None]
  - HEADACHE [None]
  - PRURITUS [None]
  - RASH [None]
  - SKIN DISORDER [None]
  - VASCULITIS [None]
